FAERS Safety Report 20317669 (Version 1)
Quarter: 2022Q1

REPORT INFORMATION
  Report Type: Spontaneous
  Country: CA (occurrence: CA)
  Receive Date: 20220110
  Receipt Date: 20220110
  Transmission Date: 20220423
  Serious: Yes (Hospitalization)
  Sender: FDA-Public Use
  Company Number: CA-TEVA-2021-CA-1996481

PATIENT
  Age: 46 Year
  Sex: Female
  Weight: 86 kg

DRUGS (12)
  1. MORPHINE [Suspect]
     Active Substance: MORPHINE
     Route: 065
  2. PIPERACILLIN SODIUM\TAZOBACTAM SODIUM [Suspect]
     Active Substance: PIPERACILLIN SODIUM\TAZOBACTAM SODIUM
     Dosage: 16000 MILLIGRAM DAILY;
     Route: 042
  3. ACETAMINOPHEN [Concomitant]
     Active Substance: ACETAMINOPHEN
  4. CHLORHEXIDINE [Concomitant]
     Active Substance: CHLORHEXIDINE
  5. CISATRACURIUM [Concomitant]
     Active Substance: CISATRACURIUM
  6. DEXAMETHASONE [Concomitant]
     Active Substance: DEXAMETHASONE
  7. FUROSEMIDE [Concomitant]
     Active Substance: FUROSEMIDE
  8. MIDAZOLAM [Concomitant]
     Active Substance: MIDAZOLAM
  9. NOREPINEPHRINE [Concomitant]
     Active Substance: NOREPINEPHRINE
  10. OLANZAPINE [Concomitant]
     Active Substance: OLANZAPINE
  11. POLYETHYLENE GLYCOL [Concomitant]
     Active Substance: POLYETHYLENE GLYCOL
  12. SYNTHROID [Concomitant]
     Active Substance: LEVOTHYROXINE SODIUM

REACTIONS (1)
  - Rash maculo-papular [Recovering/Resolving]
